FAERS Safety Report 6763599-6 (Version None)
Quarter: 2010Q2

REPORT INFORMATION
  Report Type: 
  Country: None (occurrence: None)
  Receive Date: 20100610
  Receipt Date: 20100607
  Transmission Date: 20101027
  Serious: Yes (Other)
  Sender: FDA-Public Use
  Company Number: US-ASTRAZENECA-2007UW05685

PATIENT
  Age: 785 Month
  Sex: Female
  Weight: 79.8 kg

DRUGS (41)
  1. SEROQUEL [Suspect]
     Indication: BIPOLAR DISORDER
     Dosage: 25-50 MG
     Route: 048
     Dates: start: 20010330, end: 20010405
  2. SEROQUEL [Suspect]
     Indication: MANIA
     Dosage: 25-50 MG
     Route: 048
     Dates: start: 20010330, end: 20010405
  3. SEROQUEL [Suspect]
     Indication: DEPRESSION
     Dosage: 25-50 MG
     Route: 048
     Dates: start: 20010330, end: 20010405
  4. SEROQUEL [Suspect]
     Route: 048
  5. SEROQUEL [Suspect]
     Route: 048
  6. SEROQUEL [Suspect]
     Route: 048
  7. SEROQUEL [Suspect]
     Dosage: 50-100 MG
     Route: 048
     Dates: start: 20010412, end: 20010418
  8. SEROQUEL [Suspect]
     Dosage: 50-100 MG
     Route: 048
     Dates: start: 20010412, end: 20010418
  9. SEROQUEL [Suspect]
     Dosage: 50-100 MG
     Route: 048
     Dates: start: 20010412, end: 20010418
  10. SEROQUEL [Suspect]
     Dosage: 10-500 MG
     Route: 048
     Dates: start: 20011205
  11. SEROQUEL [Suspect]
     Dosage: 10-500 MG
     Route: 048
     Dates: start: 20011205
  12. SEROQUEL [Suspect]
     Dosage: 10-500 MG
     Route: 048
     Dates: start: 20011205
  13. SEROQUEL [Suspect]
     Route: 048
     Dates: start: 20030929, end: 20071001
  14. SEROQUEL [Suspect]
     Route: 048
     Dates: start: 20030929, end: 20071001
  15. SEROQUEL [Suspect]
     Route: 048
     Dates: start: 20030929, end: 20071001
  16. SEROQUEL [Suspect]
     Route: 048
     Dates: start: 20071029
  17. SEROQUEL [Suspect]
     Route: 048
     Dates: start: 20071029
  18. SEROQUEL [Suspect]
     Route: 048
     Dates: start: 20071029
  19. SEROQUEL [Suspect]
     Route: 048
     Dates: start: 20090223
  20. SEROQUEL [Suspect]
     Route: 048
     Dates: start: 20090223
  21. SEROQUEL [Suspect]
     Route: 048
     Dates: start: 20090223
  22. SEROQUEL [Suspect]
     Route: 048
     Dates: start: 20100112
  23. SEROQUEL [Suspect]
     Route: 048
     Dates: start: 20100112
  24. SEROQUEL [Suspect]
     Route: 048
     Dates: start: 20100112
  25. ZYPREXA [Suspect]
     Route: 065
     Dates: start: 20010501, end: 20011101
  26. ZOCOR [Concomitant]
     Indication: HYPERCHOLESTEROLAEMIA
     Dosage: 10-40 MG
     Route: 048
     Dates: start: 20020912
  27. ZOCOR [Concomitant]
     Indication: HYPERLIPIDAEMIA
     Dosage: 10-40 MG
     Route: 048
     Dates: start: 20020912
  28. MIRALAX 3350 NF [Concomitant]
     Indication: CONSTIPATION
     Dosage: TAKE 17 GM IN 8 OUNCES OF WATER DAILY
     Dates: start: 20031010
  29. ALLOPURINOL [Concomitant]
     Dosage: 100-300 MG
     Route: 048
     Dates: start: 20000331, end: 20040601
  30. NEURONTIN [Concomitant]
     Dosage: 200-1700 MG
     Route: 048
     Dates: start: 20010330
  31. LITHIUM CARBONATE CAP [Concomitant]
     Route: 048
     Dates: start: 20021108
  32. SYNTHROID [Concomitant]
     Dosage: 0.025-0.075 MG
     Route: 048
     Dates: start: 19961114
  33. GLIPIZIDE [Concomitant]
     Dosage: 5-20 MG
     Route: 048
     Dates: start: 20050420
  34. ACTOS [Concomitant]
     Indication: TYPE 2 DIABETES MELLITUS
     Dosage: 15-30 MG
     Route: 048
     Dates: start: 20050331
  35. CALCIUM CARBONATE [Concomitant]
     Dosage: TWO TIMES A DAY
     Route: 048
     Dates: start: 20010330, end: 20030506
  36. CALCIUM CARBONATE [Concomitant]
     Dosage: DAILY
     Route: 048
     Dates: start: 20030508
  37. INDOCIN [Concomitant]
     Indication: GOUT
     Dosage: 50-150 MG
     Route: 048
     Dates: start: 19980313, end: 20041101
  38. TYLENOL [Concomitant]
     Dosage: 325 MG EVERY 4-6 HOURS AS NEEDED
     Route: 048
     Dates: start: 20010403
  39. VITAMIN D SUPPLEMENTS [Concomitant]
     Dates: start: 20021009
  40. ATARAX [Concomitant]
     Indication: PRURITUS
     Dosage: 10-75 MG
     Dates: start: 19970902
  41. ATIVAN [Concomitant]
     Indication: ANXIETY
     Dosage: 0.5 MG EVERY 6-8 HOURS
     Dates: start: 20011125

REACTIONS (8)
  - BLOOD GLUCOSE INCREASED [None]
  - DIABETES MELLITUS [None]
  - DIABETIC FOOT [None]
  - DIABETIC GASTROENTEROPATHY [None]
  - DIABETIC NEUROPATHY [None]
  - HYPERGLYCAEMIA [None]
  - PERIPHERAL SENSORY NEUROPATHY [None]
  - TYPE 2 DIABETES MELLITUS [None]
